FAERS Safety Report 21047522 (Version 1)
Quarter: 2022Q3

REPORT INFORMATION
  Report Type: Spontaneous
  Country: GB (occurrence: GB)
  Receive Date: 20220706
  Receipt Date: 20220706
  Transmission Date: 20221027
  Serious: Yes (Hospitalization, Other)
  Sender: FDA-Public Use
  Company Number: GB-MHRA-MED-202206271414436260-CZSQH

PATIENT
  Age: 8 Year
  Sex: Female
  Weight: 30 kg

DRUGS (3)
  1. LAMOTRIGINE [Suspect]
     Active Substance: LAMOTRIGINE
     Indication: Epilepsy
     Dosage: 25 MILLIGRAM, HS (25MG AT NIGHT)
     Route: 065
     Dates: start: 20220422, end: 20220501
  2. LEVETIRACETAM [Concomitant]
     Active Substance: LEVETIRACETAM
     Indication: Epilepsy
     Dosage: UNK
     Route: 065
  3. EPILIM [Concomitant]
     Active Substance: VALPROATE SODIUM
     Indication: Epilepsy
     Dosage: UNK
     Route: 065

REACTIONS (4)
  - Thrombocytopenia [Recovering/Resolving]
  - Rash [Recovering/Resolving]
  - Somnolence [Recovered/Resolved]
  - Body temperature increased [Recovered/Resolved]

NARRATIVE: CASE EVENT DATE: 20220427
